FAERS Safety Report 5941591-9 (Version None)
Quarter: 2008Q4

REPORT INFORMATION
  Report Type: 
  Country: None (occurrence: None)
  Receive Date: 20081103
  Receipt Date: 20080623
  Transmission Date: 20090506
  Serious: Yes (Other)
  Sender: FDA-Public Use
  Company Number: 2008AP000571

PATIENT
  Age: 77 Year
  Sex: Male

DRUGS (7)
  1. APO-RAMIPRIL (RAMIPRIL) [Suspect]
     Indication: HYPERTENSION
     Dosage: 5 MG; CAP;PO, QD
     Route: 048
     Dates: start: 20080601
  2. INDAPAMIDE [Concomitant]
  3. ACETYLSALICYLIC ACID SRT [Concomitant]
  4. LEVOTHYROXINE SODIUM [Concomitant]
  5. EZETIMIBE [Concomitant]
  6. SIMVASTATIN [Concomitant]
  7. PANTOPRAZOLE SODIUM [Concomitant]

REACTIONS (5)
  - AGEUSIA [None]
  - ANOSMIA [None]
  - PAIN [None]
  - PANCREATITIS [None]
  - SENSORY LOSS [None]
